FAERS Safety Report 9806168 (Version 1)
Quarter: 2014Q1

REPORT INFORMATION
  Report Type: Spontaneous
  Country: BR (occurrence: BR)
  Receive Date: 20140109
  Receipt Date: 20140109
  Transmission Date: 20141002
  Serious: Yes (Other)
  Sender: FDA-Public Use
  Company Number: BR-PFIZER INC-2014004509

PATIENT
  Age: 30 Year
  Sex: Female
  Weight: 54 kg

DRUGS (2)
  1. EFEXOR XR [Suspect]
     Dosage: 75 MG (1 CAPSULE), 1X/DAY
     Route: 048
     Dates: start: 20110921
  2. PROCIMAX [Concomitant]
     Dosage: UNK

REACTIONS (2)
  - Road traffic accident [Unknown]
  - Foot fracture [Unknown]
